FAERS Safety Report 8042231-8 (Version None)
Quarter: 2012Q1

REPORT INFORMATION
  Report Type: 
  Country: None (occurrence: None)
  Receive Date: 20120112
  Receipt Date: 20120109
  Transmission Date: 20120608
  Serious: Yes (Hospitalization, Other)
  Sender: FDA-Public Use
  Company Number: ES-B.I. PHARMACEUTICALS,INC./RIDGEFIELD-2011-EU-00937GD

PATIENT
  Sex: Male

DRUGS (7)
  1. SELEGILINE [Suspect]
     Indication: PARKINSON'S DISEASE
     Dosage: 5 MG
  2. AMANTADINE HCL [Suspect]
     Indication: PARKINSON'S DISEASE
     Dosage: 100 MG
  3. BIPERIDEN HYDROCHLORIDE TAB [Suspect]
     Indication: PARKINSON'S DISEASE
     Dosage: 4 MG
  4. PRAMIPEXOLE DIHYCHLLORIDE [Suspect]
     Dosage: 2.1 MG
  5. CARBIDOPA + LEVODOPA [Suspect]
     Indication: PARKINSON'S DISEASE
     Dosage: LEVODOPA/CARBIDOPA 400/100 MG
  6. PRAMIPEXOLE DIHYCHLLORIDE [Suspect]
     Dosage: 4.2 MG
  7. PRAMIPEXOLE DIHYCHLLORIDE [Suspect]
     Indication: PARKINSON'S DISEASE
     Dosage: 2.8 MG

REACTIONS (6)
  - POLYDIPSIA [None]
  - INTENTIONAL DRUG MISUSE [None]
  - HYPOMANIA [None]
  - APATHY [None]
  - DOPAMINE DYSREGULATION SYNDROME [None]
  - HYPERSEXUALITY [None]
